FAERS Safety Report 13445369 (Version 1)
Quarter: 2017Q2

REPORT INFORMATION
  Report Type: Other
  Country: GB (occurrence: US)
  Receive Date: 20170414
  Receipt Date: 20170414
  Transmission Date: 20170830
  Serious: Yes (Life-Threatening, Hospitalization, Other)
  Sender: FDA-Public Use
  Company Number: US-INTERNATIONAL MEDICATION SYSTEMS, LIMITED-1065402

PATIENT
  Age: 23 Year
  Sex: Male

DRUGS (8)
  1. NALOXONE [Suspect]
     Active Substance: NALOXONE
     Route: 042
  2. DIPHENHYDRAMINE. [Concomitant]
     Active Substance: DIPHENHYDRAMINE
  3. GALANTAMINE. [Suspect]
     Active Substance: GALANTAMINE
  4. COCAINE [Concomitant]
     Active Substance: COCAINE
  5. CODEINE [Suspect]
     Active Substance: CODEINE
  6. FENTANYL. [Suspect]
     Active Substance: FENTANYL
  7. OXYCODONE HYDROCHLORIDE. [Suspect]
     Active Substance: OXYCODONE HYDROCHLORIDE
  8. QUININE SULFATE. [Concomitant]
     Active Substance: QUININE SULFATE

REACTIONS (3)
  - Drug withdrawal syndrome [Unknown]
  - Sinus tachycardia [Unknown]
  - Agitation [Unknown]
